FAERS Safety Report 6857874-4 (Version None)
Quarter: 2010Q3

REPORT INFORMATION
  Report Type: 
  Country: None (occurrence: None)
  Receive Date: 20100719
  Receipt Date: 20080130
  Transmission Date: 20110219
  Serious: No
  Sender: FDA-Public Use
  Company Number: US-PFIZER INC-2008010134

PATIENT
  Sex: Female
  Weight: 63.5 kg

DRUGS (3)
  1. CHANTIX [Suspect]
     Indication: SMOKING CESSATION THERAPY
     Dates: start: 20071201, end: 20080121
  2. SYNTHROID [Concomitant]
     Indication: THYROID DISORDER
  3. ZOLOFT [Concomitant]

REACTIONS (3)
  - DYSGEUSIA [None]
  - EATING DISORDER [None]
  - WEIGHT DECREASED [None]
